FAERS Safety Report 9972474 (Version 1)
Quarter: 2014Q1

REPORT INFORMATION
  Report Type: Report from Study
  Country: US (occurrence: US)
  Receive Date: 20140306
  Receipt Date: 20140306
  Transmission Date: 20141002
  Serious: No
  Sender: FDA-Public Use
  Company Number: US-ABBVIE-13P-163-1153982-00

PATIENT
  Age: 56 Year
  Sex: Female
  Weight: 64.47 kg

DRUGS (14)
  1. HUMIRA [Suspect]
     Indication: RHEUMATOID ARTHRITIS
     Route: 058
     Dates: start: 200401
  2. METHOTREXATE [Concomitant]
     Indication: RHEUMATOID ARTHRITIS
  3. FOLIC ACID [Concomitant]
     Indication: RHEUMATOID ARTHRITIS
  4. NAPROXEN [Concomitant]
     Indication: PAIN
  5. ESTROGEN [Concomitant]
     Indication: HORMONE REPLACEMENT THERAPY
  6. PROGESTERONE [Concomitant]
     Indication: HORMONE REPLACEMENT THERAPY
  7. ESTRACE [Concomitant]
     Indication: HORMONE REPLACEMENT THERAPY
  8. VITAMIN D [Concomitant]
     Indication: VITAMIN SUPPLEMENTATION
  9. HYDROCHLOROT [Concomitant]
     Indication: ABDOMINAL DISTENSION
  10. ACYCLOVIR [Concomitant]
     Indication: HERPES VIRUS INFECTION
  11. CHLORPHENIMINE [Concomitant]
     Indication: HYPERSENSITIVITY
  12. MAGNESIUM [Concomitant]
     Indication: VITAMIN SUPPLEMENTATION
  13. CALCIUM [Concomitant]
     Indication: VITAMIN SUPPLEMENTATION
  14. VITAMIN B COMPLEX [Concomitant]
     Indication: VITAMIN SUPPLEMENTATION

REACTIONS (4)
  - Sinus congestion [Recovering/Resolving]
  - Nasopharyngitis [Recovering/Resolving]
  - Oropharyngeal pain [Recovering/Resolving]
  - Ear infection [Not Recovered/Not Resolved]
